FAERS Safety Report 4609620-2 (Version None)
Quarter: 2005Q1

REPORT INFORMATION
  Report Type: 
  Country: None (occurrence: None)
  Receive Date: 20050314
  Receipt Date: 20050314
  Transmission Date: 20050727
  Serious: Yes (Hospitalization)
  Sender: FDA-Public Use
  Company Number: None

PATIENT
  Age: 6 Year
  Sex: Male
  Weight: 23 kg

DRUGS (1)
  1. ATOMOXITINE [Suspect]
     Dosage: 18 MG   QAM    ORAL
     Route: 048
     Dates: start: 20040406, end: 20040408

REACTIONS (4)
  - DROOLING [None]
  - DYSPHONIA [None]
  - MOVEMENT DISORDER [None]
  - SWELLING FACE [None]
